FAERS Safety Report 9442505 (Version 1)
Quarter: 2013Q3

REPORT INFORMATION
  Report Type: Spontaneous
  Country: IT (occurrence: IT)
  Receive Date: 20130806
  Receipt Date: 20130806
  Transmission Date: 20140515
  Serious: Yes (Hospitalization)
  Sender: FDA-Public Use
  Company Number: IT-BAYER-2013-092094

PATIENT
  Age: 83 Year
  Sex: Male

DRUGS (13)
  1. CARDIOASPIRIN [Suspect]
     Indication: MYOCARDIAL ISCHAEMIA
     Dosage: 100 MG, DAILY DOSE
     Route: 048
     Dates: start: 20030101, end: 20130616
  2. TIKLID [Suspect]
     Indication: MYOCARDIAL ISCHAEMIA
     Dosage: 500 MG, DAILY DOSE
     Route: 048
     Dates: start: 20030101, end: 20130616
  3. PANTORC [Concomitant]
     Indication: PROPHYLAXIS AGAINST GASTROINTESTINAL ULCER
     Dosage: 40 MG, DAILY DOSE
     Route: 048
  4. TRIATEC [Concomitant]
     Indication: HYPERTENSION
     Dosage: 5 MG, DAILY DOSE
     Route: 048
  5. LASIX [Concomitant]
     Indication: HYPERTENSION
     Dosage: 25 MG, DAILY DOSE
     Route: 048
  6. DILATREND [Concomitant]
     Indication: MYOCARDIAL ISCHAEMIA
     Dosage: 12.58 MG, DAILY DOSE
     Route: 048
  7. NITROGLYCERINE [Concomitant]
     Indication: MYOCARDIAL ISCHAEMIA
     Dosage: 10 MG, DAILY DOSE
     Route: 062
  8. SEROQUEL [Concomitant]
     Dosage: 75 MG, DAILY DOSE
     Route: 048
  9. CARDURA [Concomitant]
     Dosage: 4 MG, DAILY DOSE
     Route: 048
  10. ALDACTONE [SPIRONOLACTONE] [Concomitant]
     Indication: MYOCARDIAL ISCHAEMIA
     Dosage: 25 MG, DAILY DOSE
     Route: 048
  11. VASEXTEN [Concomitant]
     Indication: HYPERTENSION
     Dosage: 10 MG, DAILY DOSE
  12. MADOPAR [Concomitant]
     Indication: PARKINSON^S DISEASE
     Dosage: 250 MG, DAILY DOSE
  13. CLOPIXOL [Concomitant]

REACTIONS (2)
  - Visual impairment [Recovering/Resolving]
  - Cerebral haemorrhage [Recovering/Resolving]
